FAERS Safety Report 8855990 (Version 1)
Quarter: 2012Q4

REPORT INFORMATION
  Report Type: 
  Country: US (occurrence: US)
  Receive Date: 20121023
  Receipt Date: 20121023
  Transmission Date: 20130627
  Serious: No
  Sender: FDA-Public Use
  Company Number: US-AMGEN-USASP2012058338

PATIENT
  Age: 42 Year
  Sex: Male

DRUGS (4)
  1. ENBREL [Suspect]
     Indication: PRODUCT USED FOR UNKNOWN INDICATION
     Dosage: 50 mg, qwk
     Route: 058
  2. CELEBREX [Concomitant]
     Dosage: 100 mg, UNK
  3. AMBIEN [Concomitant]
     Dosage: 10 mg, UNK
  4. NAPROXEN [Concomitant]
     Dosage: 250 mg, UNK

REACTIONS (3)
  - Sinusitis [Unknown]
  - Injection site erythema [Unknown]
  - Injection site pain [Unknown]
